FAERS Safety Report 4767321-4 (Version None)
Quarter: 2005Q3

REPORT INFORMATION
  Report Type: 
  Country: None (occurrence: None)
  Receive Date: 20050913
  Receipt Date: 20050906
  Transmission Date: 20060218
  Serious: Yes (Other)
  Sender: FDA-Public Use
  Company Number: GB-GLAXOSMITHKLINE-B0393010A

PATIENT
  Age: 57 Year
  Sex: Male

DRUGS (1)
  1. BECLOMETHASONE DIPROPIONATE [Suspect]
     Indication: COUGH
     Dosage: 2PUFF TWICE PER DAY
     Route: 065
     Dates: start: 20050629, end: 20050804

REACTIONS (2)
  - DYSPNOEA [None]
  - PEAK EXPIRATORY FLOW RATE DECREASED [None]
